FAERS Safety Report 15979542 (Version 2)
Quarter: 2019Q1

REPORT INFORMATION
  Report Type: Spontaneous
  Country: US (occurrence: US)
  Receive Date: 20190219
  Receipt Date: 20190304
  Transmission Date: 20190418
  Serious: No
  Sender: FDA-Public Use
  Company Number: US-PFIZER INC-2018062137

PATIENT
  Age: 12 Year
  Sex: Female

DRUGS (2)
  1. GENOTROPIN [Suspect]
     Active Substance: SOMATROPIN
     Indication: INSULIN-LIKE GROWTH FACTOR DECREASED
     Dosage: 1 MG, DAILY
     Dates: start: 20180312
  2. GENOTROPIN [Suspect]
     Active Substance: SOMATROPIN
     Dosage: 1.3 MG, DAILY

REACTIONS (8)
  - Mood swings [Recovering/Resolving]
  - Blood urea increased [Unknown]
  - Blood creatinine decreased [Unknown]
  - Product use in unapproved indication [Unknown]
  - Sleep disorder [Recovering/Resolving]
  - Anion gap increased [Unknown]
  - Blood urea nitrogen/creatinine ratio increased [Unknown]
  - Product prescribing error [Unknown]

NARRATIVE: CASE EVENT DATE: 20180312
